FAERS Safety Report 4986971-3 (Version None)
Quarter: 2006Q2

REPORT INFORMATION
  Report Type: 
  Country: None (occurrence: None)
  Receive Date: 20060428
  Receipt Date: 20060428
  Transmission Date: 20061013
  Serious: Yes (Life-Threatening, Hospitalization, Other)
  Sender: FDA-Public Use
  Company Number: None

PATIENT
  Age: 58 Year
  Sex: Female
  Weight: 49.8957 kg

DRUGS (9)
  1. CRESTOR [Suspect]
     Indication: HYPERLIPIDAEMIA
     Dosage: 20 MG DAILY PO
     Route: 048
  2. NORVIR [Suspect]
     Indication: URTICARIA
     Dosage: 200 MG DAILY PO
     Route: 048
  3. FENOBITRATE [Concomitant]
  4. ACYCLOVIR [Concomitant]
  5. ASPIRIN [Concomitant]
  6. RAMIPRIL [Concomitant]
  7. TENOFOVIR/EMTRICITABINE [Concomitant]
  8. SAQUINAVIR [Concomitant]
  9. DICLODENAC [Concomitant]

REACTIONS (3)
  - DRUG LEVEL INCREASED [None]
  - NEPHROPATHY TOXIC [None]
  - RENAL TUBULAR NECROSIS [None]
